FAERS Safety Report 6415805-5 (Version None)
Quarter: 2009Q4

REPORT INFORMATION
  Report Type: 
  Country: None (occurrence: None)
  Receive Date: 20091027
  Receipt Date: 20091015
  Transmission Date: 20100525
  Serious: Yes (Other)
  Sender: FDA-Public Use
  Company Number: US-PFIZER INC-2009269453

PATIENT
  Sex: Female
  Weight: 79.365 kg

DRUGS (3)
  1. ZYVOX [Suspect]
     Indication: NOCARDIOSIS
     Dosage: 600 MG, 2X/DAY
     Route: 048
     Dates: start: 20090720, end: 20090701
  2. ZYVOX [Suspect]
     Dosage: 600 MG, 2X/DAY
     Route: 048
     Dates: start: 20090801, end: 20090901
  3. THYROID TAB [Concomitant]
     Indication: THYROID DISORDER

REACTIONS (4)
  - CHEST PAIN [None]
  - GASTROINTESTINAL HAEMORRHAGE [None]
  - HYPOAESTHESIA [None]
  - THROAT IRRITATION [None]
